FAERS Safety Report 12615167 (Version 1)
Quarter: 2016Q3

REPORT INFORMATION
  Report Type: Report from Study
  Country: FR (occurrence: FR)
  Receive Date: 20160802
  Receipt Date: 20160802
  Transmission Date: 20161109
  Serious: Yes (Death, Hospitalization)
  Sender: FDA-Public Use
  Company Number: FR-ROCHE-1804459

PATIENT
  Sex: Female
  Weight: 58 kg

DRUGS (11)
  1. FLUOROURACIL. [Suspect]
     Active Substance: FLUOROURACIL
     Dosage: LAST DOSE PRIOR TO INFUSION: 28/APR//2016
     Route: 041
     Dates: start: 20150811
  2. ESIDREX [Concomitant]
     Active Substance: HYDROCHLOROTHIAZIDE
     Route: 065
  3. BEVACIZUMAB [Suspect]
     Active Substance: BEVACIZUMAB
     Indication: COLORECTAL CANCER
     Dosage: LAST DOSE PRIOR TO SAE: 26/APR/2016
     Route: 065
     Dates: start: 20150811
  4. CALCIUM LEVOFOLINATE [Suspect]
     Active Substance: LEVOLEUCOVORIN CALCIUM
     Indication: COLORECTAL CANCER
     Dosage: LAST DOSE PRIOR TO SAE: 26/APR/2016
     Route: 065
     Dates: start: 20150811
  5. LYRICA [Concomitant]
     Active Substance: PREGABALIN
     Route: 065
  6. ATEZOLIZUMAB [Suspect]
     Active Substance: ATEZOLIZUMAB
     Indication: COLORECTAL CANCER
     Dosage: LAST DOSE PRIOR TO SAE: 26/APR/2016
     Route: 065
     Dates: start: 20151208
  7. OXALIPLATINE [Suspect]
     Active Substance: OXALIPLATIN
     Indication: COLORECTAL CANCER
     Dosage: LAST DOSE PRIOR TO SAE: 20/OCT/2015.
     Route: 065
     Dates: start: 20150811
  8. AMLOR [Concomitant]
     Active Substance: AMLODIPINE BESYLATE
     Route: 065
  9. FLUOROURACIL. [Suspect]
     Active Substance: FLUOROURACIL
     Indication: COLORECTAL CANCER
     Dosage: LAST DOSE OF BOLUS PRIOR TO SAE: 17/NOV/2015
     Route: 040
     Dates: start: 20150811
  10. ELISOR [Concomitant]
     Active Substance: PRAVASTATIN SODIUM
     Route: 065
  11. FIXICAL [Concomitant]
     Active Substance: CALCIUM CARBONATE

REACTIONS (3)
  - Septic shock [Fatal]
  - Pyrexia [Fatal]
  - Multiple organ dysfunction syndrome [Fatal]
